FAERS Safety Report 8286750-8 (Version None)
Quarter: 2012Q2

REPORT INFORMATION
  Report Type: 
  Country: None (occurrence: None)
  Receive Date: 20120416
  Receipt Date: 20120410
  Transmission Date: 20120825
  Serious: Yes (Other)
  Sender: FDA-Public Use
  Company Number: GB-PFIZER INC-2012089970

PATIENT
  Age: 20 Year
  Sex: Male

DRUGS (3)
  1. REFACTO [Suspect]
     Indication: SURGERY
  2. REFACTO [Suspect]
     Indication: HAEMORRHAGE
     Dosage: AS NEEDED
  3. REFACTO [Suspect]
     Indication: HAEMOPHILIA

REACTIONS (1)
  - FACTOR VIII INHIBITION [None]
